FAERS Safety Report 20548838 (Version 1)
Quarter: 2022Q1

REPORT INFORMATION
  Report Type: Spontaneous
  Country: CN (occurrence: CN)
  Receive Date: 20220303
  Receipt Date: 20220303
  Transmission Date: 20220423
  Serious: Yes (Other)
  Sender: FDA-Public Use
  Company Number: CN-009507513-2202CHN007491

PATIENT
  Age: 84 Year
  Sex: Male
  Weight: 50 kg

DRUGS (4)
  1. INVANZ [Suspect]
     Active Substance: ERTAPENEM SODIUM
     Indication: Lung opacity
     Dosage: 1 GRAM, ONCE A DAY (QD)
     Route: 041
     Dates: start: 20220115, end: 20220116
  2. INVANZ [Suspect]
     Active Substance: ERTAPENEM SODIUM
     Indication: Cough
  3. INVANZ [Suspect]
     Active Substance: ERTAPENEM SODIUM
     Indication: Pyrexia
  4. SODIUM CHLORIDE [Concomitant]
     Active Substance: SODIUM CHLORIDE
     Indication: Lung opacity
     Dosage: 100 ML, ONCE A DAY (QD)
     Dates: start: 20220115, end: 20220116

REACTIONS (4)
  - Urinary incontinence [Recovering/Resolving]
  - Dizziness [Recovering/Resolving]
  - Seizure [Recovering/Resolving]
  - Loss of consciousness [Recovering/Resolving]

NARRATIVE: CASE EVENT DATE: 20220115
